FAERS Safety Report 7050232-1 (Version None)
Quarter: 2010Q4

REPORT INFORMATION
  Report Type: 
  Country: None (occurrence: None)
  Receive Date: 20101018
  Receipt Date: 20101007
  Transmission Date: 20110411
  Serious: Yes (Hospitalization)
  Sender: FDA-Public Use
  Company Number: US-US-EMD SERONO, INC.-7017469

PATIENT
  Sex: Female
  Weight: 118 kg

DRUGS (5)
  1. REBIF [Suspect]
     Indication: MULTIPLE SCLEROSIS
     Route: 058
     Dates: start: 20100804, end: 20100801
  2. REBIF [Suspect]
     Route: 058
     Dates: start: 20100801
  3. LISINOPRIL [Concomitant]
     Indication: HYPERTENSION
     Dates: start: 20090601
  4. BACLOFEN [Concomitant]
     Indication: MUSCLE SPASMS
  5. ALEVE (CAPLET) [Concomitant]
     Indication: PAIN IN EXTREMITY

REACTIONS (7)
  - BLOOD CALCIUM INCREASED [None]
  - HYPERTENSION [None]
  - INJECTION SITE ERYTHEMA [None]
  - LOBAR PNEUMONIA [None]
  - MULTIPLE SCLEROSIS RELAPSE [None]
  - OPTIC NEURITIS [None]
  - UPPER RESPIRATORY TRACT INFECTION [None]
